FAERS Safety Report 15661954 (Version 6)
Quarter: 2019Q4

REPORT INFORMATION
  Report Type: Report from Study
  Country: None (occurrence: CO)
  Receive Date: 20181127
  Receipt Date: 20191221
  Transmission Date: 20200122
  Serious: Yes (Hospitalization, Other)
  Sender: FDA-Public Use
  Company Number: CO-ABBVIE-18K-036-2569811-00

PATIENT
  Age: 71 Year
  Sex: Female
  Weight: 59 kg

DRUGS (4)
  1. HUMIRA [Suspect]
     Active Substance: ADALIMUMAB
     Indication: RHEUMATOID ARTHRITIS
     Route: 058
     Dates: start: 20090106
  2. ATORVASTATIN [Suspect]
     Active Substance: ATORVASTATIN
     Indication: PRODUCT USED FOR UNKNOWN INDICATION
     Route: 065
  3. ACETAMINOPHEN AND CODEINE [Concomitant]
     Active Substance: ACETAMINOPHEN\CODEINE PHOSPHATE
     Indication: RHEUMATOID ARTHRITIS
  4. METHOTREXATO [Concomitant]
     Active Substance: METHOTREXATE
     Indication: PRODUCT USED FOR UNKNOWN INDICATION

REACTIONS (15)
  - Hand deformity [Not Recovered/Not Resolved]
  - Torticollis [Unknown]
  - General symptom [Unknown]
  - Osteoporosis [Not Recovered/Not Resolved]
  - Choking [Recovered/Resolved]
  - Gait disturbance [Recovering/Resolving]
  - Spinal operation [Recovering/Resolving]
  - Pain in extremity [Unknown]
  - Blood triglycerides increased [Unknown]
  - Musculoskeletal pain [Unknown]
  - Blood pressure decreased [Unknown]
  - Headache [Unknown]
  - Arthralgia [Recovering/Resolving]
  - Blood cholesterol increased [Unknown]
  - Hypertension [Unknown]

NARRATIVE: CASE EVENT DATE: 2009
